FAERS Safety Report 7506694-6 (Version None)
Quarter: 2011Q2

REPORT INFORMATION
  Report Type: 
  Country: None (occurrence: None)
  Receive Date: 20110526
  Receipt Date: 20110516
  Transmission Date: 20111010
  Serious: Yes (Death, Hospitalization)
  Sender: FDA-Public Use
  Company Number: US-CEPHALON-2011002615

PATIENT
  Sex: Male
  Weight: 118 kg

DRUGS (2)
  1. BENDAMUSTINE HCL [Suspect]
     Indication: ACUTE MYELOID LEUKAEMIA
     Route: 042
     Dates: start: 20110207, end: 20110319
  2. IDARUBICIN HCL [Suspect]
     Dates: start: 20110207, end: 20110316

REACTIONS (5)
  - SINUSITIS FUNGAL [None]
  - FEBRILE NEUTROPENIA [None]
  - ACUTE MYELOID LEUKAEMIA [None]
  - CEREBROVASCULAR ACCIDENT [None]
  - CELLULITIS ORBITAL [None]
